FAERS Safety Report 17910455 (Version 1)
Quarter: 2020Q2

REPORT INFORMATION
  Report Type: Report from Study
  Country: ES (occurrence: ES)
  Receive Date: 20200618
  Receipt Date: 20200618
  Transmission Date: 20200714
  Serious: Yes (Hospitalization)
  Sender: FDA-Public Use
  Company Number: ES-TEVA-2020-ES-1788044

PATIENT
  Age: 58 Year
  Sex: Male

DRUGS (5)
  1. TROMALYT [Interacting]
     Active Substance: ASPIRIN
     Dosage: 300 MG
     Route: 048
  2. CRESTOR 10 MG COMPRIMIDOS RECUBIERTOS CON PELICULA , 28 COMPRIMIDOS [Concomitant]
     Indication: DYSLIPIDAEMIA
     Dosage: 10 MG
     Route: 048
     Dates: start: 201105
  3. RAMIPRIL (2497A) [Interacting]
     Active Substance: RAMIPRIL
     Indication: HYPERTENSION
     Dosage: 10 MG
     Route: 048
     Dates: start: 2011, end: 20170208
  4. ZOLPIDEM [Concomitant]
     Active Substance: ZOLPIDEM TARTRATE
     Dosage: 10 MG
     Route: 048
     Dates: start: 201511
  5. BISOPROLOL (2328A) [Suspect]
     Active Substance: BISOPROLOL
     Dosage: 15 MG
     Route: 048

REACTIONS (2)
  - Acute kidney injury [Recovered/Resolved]
  - Drug interaction [Unknown]

NARRATIVE: CASE EVENT DATE: 201702
